FAERS Safety Report 13573568 (Version 1)
Quarter: 2017Q2

REPORT INFORMATION
  Report Type: Spontaneous
  Country: JP (occurrence: JP)
  Receive Date: 20170523
  Receipt Date: 20170523
  Transmission Date: 20170830
  Serious: Yes (Hospitalization, Other)
  Sender: FDA-Public Use
  Company Number: JP-009507513-1705JPN000003J

PATIENT
  Age: 63 Year
  Sex: Male
  Weight: 53 kg

DRUGS (6)
  1. CANCIDAS [Suspect]
     Active Substance: CASPOFUNGIN ACETATE
     Indication: ASPERGILLOMA
     Dosage: 70 MG, QD
     Route: 041
     Dates: start: 20160513, end: 20160513
  2. ZOSYN [Concomitant]
     Active Substance: PIPERACILLIN SODIUM\TAZOBACTAM SODIUM
     Indication: PNEUMONIA
     Dosage: 4.5 G, BID
     Route: 051
     Dates: start: 20160513, end: 20160519
  3. NOVORAPID [Concomitant]
     Active Substance: INSULIN ASPART
     Indication: DIABETES MELLITUS
     Dosage: 4 IU, TID
     Route: 058
     Dates: start: 20160513
  4. ADONA [Concomitant]
     Active Substance: CARBAZOCHROME SODIUM SULFONATE
     Indication: RESPIRATORY TRACT HAEMORRHAGE
     Dosage: 50 MG, QD
     Route: 051
     Dates: start: 20160513
  5. TRANSAMIN [Concomitant]
     Active Substance: TRANEXAMIC ACID
     Indication: RESPIRATORY TRACT HAEMORRHAGE
     Dosage: 1 G, QD
     Route: 051
     Dates: start: 20160513
  6. CANCIDAS [Suspect]
     Active Substance: CASPOFUNGIN ACETATE
     Indication: ASPERGILLOMA
     Dosage: 50 MG, QD
     Route: 041
     Dates: start: 20160514, end: 20160526

REACTIONS (5)
  - Respiratory tract haemorrhage [Unknown]
  - Diabetes mellitus [Unknown]
  - Drug ineffective [Unknown]
  - Neutrophil count increased [Recovered/Resolved]
  - Pneumonia [Not Recovered/Not Resolved]

NARRATIVE: CASE EVENT DATE: 20160513
